FAERS Safety Report 21571384 (Version 1)
Quarter: 2022Q4

REPORT INFORMATION
  Report Type: Spontaneous
  Country: CA (occurrence: CA)
  Receive Date: 20221109
  Receipt Date: 20221109
  Transmission Date: 20230113
  Serious: Yes (Other)
  Sender: FDA-Public Use
  Company Number: CA-GALDERMA-CA2022015626

PATIENT

DRUGS (34)
  1. METRONIDAZOLE [Suspect]
     Active Substance: METRONIDAZOLE
     Indication: Product used for unknown indication
     Dosage: UNK
     Route: 065
  2. METRONIDAZOLE [Suspect]
     Active Substance: METRONIDAZOLE
     Dosage: UNK
     Route: 065
  3. ACETAMINOPHEN [Concomitant]
     Active Substance: ACETAMINOPHEN
     Indication: Product used for unknown indication
     Route: 065
  4. ACETAMINOPHEN AND CODEINE [Concomitant]
     Active Substance: ACETAMINOPHEN\CODEINE PHOSPHATE
     Indication: Product used for unknown indication
     Route: 065
  5. ALIGN [Concomitant]
     Active Substance: BIFIDOBACTERIUM LONGUM SUBSP. INFANTIS
     Indication: Product used for unknown indication
     Route: 065
  6. BACTRIM [Concomitant]
     Active Substance: SULFAMETHOXAZOLE\TRIMETHOPRIM
     Indication: Product used for unknown indication
     Route: 065
  7. CALCIUM [Concomitant]
     Active Substance: CALCIUM
     Indication: Product used for unknown indication
     Route: 065
  8. CALCIUM CARBONATE [Concomitant]
     Active Substance: CALCIUM CARBONATE
     Indication: Product used for unknown indication
     Route: 065
  9. CIPROFLOXACIN [Concomitant]
     Active Substance: CIPROFLOXACIN
     Indication: Product used for unknown indication
     Route: 042
  10. CORTENEMA [Concomitant]
     Active Substance: HYDROCORTISONE
     Indication: Product used for unknown indication
     Route: 065
  11. DIFLUCAN [Concomitant]
     Active Substance: FLUCONAZOLE
     Indication: Product used for unknown indication
     Route: 065
  12. DILAUDID [Concomitant]
     Active Substance: HYDROMORPHONE HYDROCHLORIDE
     Indication: Product used for unknown indication
     Dosage: 1 DOSAGE FORM, BID
     Route: 065
  13. DILAUDID [Concomitant]
     Active Substance: HYDROMORPHONE HYDROCHLORIDE
     Dosage: 1 DOSAGE FORM
     Route: 065
  14. DILAUDID [Concomitant]
     Active Substance: HYDROMORPHONE HYDROCHLORIDE
     Dosage: 1 DOSAGE FORM
     Route: 065
  15. ACETAMINOPHEN [Concomitant]
     Active Substance: ACETAMINOPHEN
     Indication: Product used for unknown indication
     Route: 065
  16. ERGOCALCIFEROL [Concomitant]
     Active Substance: ERGOCALCIFEROL
     Indication: Product used for unknown indication
     Route: 065
  17. FENTANYL [Concomitant]
     Active Substance: FENTANYL
     Indication: Colitis
     Route: 042
  18. FLAGYL [Concomitant]
     Active Substance: METRONIDAZOLE\METRONIDAZOLE HYDROCHLORIDE
     Indication: Product used for unknown indication
     Dosage: UNK
     Route: 065
  19. HUMIRA [Concomitant]
     Active Substance: ADALIMUMAB
     Indication: Product used for unknown indication
     Route: 042
  20. HYDROCORTISONE BUTYRATE [Concomitant]
     Active Substance: HYDROCORTISONE BUTYRATE
     Indication: Product used for unknown indication
     Route: 065
  21. MESALAMINE [Concomitant]
     Active Substance: MESALAMINE
     Indication: Colitis
     Dosage: UNK UNK, TID
     Route: 065
  22. METHYLPREDNISOLONE SODIUM SUCCINATE [Concomitant]
     Active Substance: METHYLPREDNISOLONE SODIUM SUCCINATE
     Indication: Product used for unknown indication
     Route: 042
  23. MIDAZOLAM HYDROCHLORIDE [Concomitant]
     Active Substance: MIDAZOLAM HYDROCHLORIDE
     Indication: Seizure
     Dosage: 2 DOSAGE FORM
     Route: 065
  24. MORPHINE [Concomitant]
     Active Substance: MORPHINE
     Indication: Product used for unknown indication
     Route: 065
  25. OXYBUTYNIN CHLORIDE [Concomitant]
     Active Substance: OXYBUTYNIN CHLORIDE
     Indication: Product used for unknown indication
     Route: 065
  26. PARA-AMINOSALICYLIC ACID [Concomitant]
     Active Substance: AMINOSALICYLIC ACID
     Indication: Product used for unknown indication
     Route: 065
  27. REMICADE [Concomitant]
     Active Substance: INFLIXIMAB
     Indication: Product used for unknown indication
     Route: 042
  28. MESALAMINE [Concomitant]
     Active Substance: MESALAMINE
     Indication: Colitis
     Dosage: UNK UNK, TID
     Route: 065
  29. MESALAMINE [Concomitant]
     Active Substance: MESALAMINE
     Indication: Product used for unknown indication
     Dosage: UNK
     Route: 065
  30. SUCRALFATE [Concomitant]
     Active Substance: SUCRALFATE
     Indication: Product used for unknown indication
     Route: 065
  31. VEDOLIZUMAB [Concomitant]
     Active Substance: VEDOLIZUMAB
     Indication: Product used for unknown indication
     Dosage: 200 MILLIGRAM,  (3 EVERY 1 DAY)
     Route: 042
  32. VEDOLIZUMAB [Concomitant]
     Active Substance: VEDOLIZUMAB
     Dosage: 600 MILLIGRAM
     Route: 065
  33. VITAMIN D NOS [Concomitant]
     Active Substance: VITAMIN D NOS
     Indication: Product used for unknown indication
     Route: 065
  34. ZOPICLONE [Concomitant]
     Active Substance: ZOPICLONE
     Indication: Product used for unknown indication
     Route: 065

REACTIONS (19)
  - Colitis [Unknown]
  - Colitis ulcerative [Unknown]
  - Female genital tract fistula [Unknown]
  - Haematochezia [Unknown]
  - Rectal haemorrhage [Unknown]
  - Radiculopathy [Unknown]
  - Abdominal pain [Unknown]
  - Anaemia [Unknown]
  - Constipation [Unknown]
  - Erythema [Unknown]
  - Frequent bowel movements [Unknown]
  - Headache [Unknown]
  - Nausea [Unknown]
  - Oral candidiasis [Unknown]
  - Pain [Unknown]
  - Proctitis [Unknown]
  - Vaginal discharge [Unknown]
  - Vaginal flatulence [Unknown]
  - Pyrexia [Unknown]
